FAERS Safety Report 25125018 (Version 1)
Quarter: 2025Q1

REPORT INFORMATION
  Report Type: Spontaneous
  Country: US (occurrence: None)
  Receive Date: 20250326
  Receipt Date: 20250326
  Transmission Date: 20250409
  Serious: No
  Sender: FDA-CTU
  Company Number: None

PATIENT
  Sex: Male

DRUGS (1)
  1. RINVOQ [Suspect]
     Active Substance: UPADACITINIB
     Indication: Rheumatoid arthritis
     Dosage: 15 UG MICRORGAM (S) DAILY ORAL
     Route: 048
     Dates: start: 20250306

REACTIONS (4)
  - Dry mouth [None]
  - Thirst [None]
  - Infection [None]
  - Ageusia [None]
